FAERS Safety Report 9529200 (Version 2)
Quarter: 2014Q2

REPORT INFORMATION
  Report Type: Spontaneous
  Country: US (occurrence: None)
  Receive Date: 20130401
  Receipt Date: 20140401
  Transmission Date: 20141212
  Serious: Yes (Hospitalization)
  Sender: FDA-Public Use
  Company Number: PHEH2013US001466

PATIENT
  Age: 81 Year
  Sex: Female

DRUGS (4)
  1. EXELON PATCH (RIVASTIGMINE) TRANS-THERAPEUTIC SYSTEM [Suspect]
     Indication: DEMENTIA ALZHEIMER^S TYPE
     Route: 062
  2. AMLODIPINE (AMLODIPINE) [Concomitant]
  3. BISOPROLOL (BISOPROLOL) [Concomitant]
  4. LEVOTHYROXINE (LEVOTHYROXINE) [Concomitant]

REACTIONS (2)
  - Abdominal discomfort [None]
  - Nausea [None]
